FAERS Safety Report 5339254-6 (Version None)
Quarter: 2007Q2

REPORT INFORMATION
  Report Type: 
  Country: None (occurrence: None)
  Receive Date: 20070322
  Receipt Date: 20061106
  Transmission Date: 20071010
  Serious: Yes (Other)
  Sender: FDA-Public Use
  Company Number: 200614409BCC

PATIENT
  Sex: Female
  Weight: 72.1219 kg

DRUGS (3)
  1. ALEVE (CAPLET) [Suspect]
     Indication: PAIN
     Dosage: 220 MG, BID, ORAL
     Route: 048
  2. NATURAL VITAMINS [Concomitant]
  3. GLYBURIDE [Concomitant]

REACTIONS (1)
  - RECTAL HAEMORRHAGE [None]
